FAERS Safety Report 16148620 (Version 3)
Quarter: 2019Q2

REPORT INFORMATION
  Report Type: Spontaneous
  Country: US (occurrence: US)
  Receive Date: 20190402
  Receipt Date: 20190614
  Transmission Date: 20190711
  Serious: No
  Sender: FDA-Public Use
  Company Number: US-JNJFOC-20190235354

PATIENT
  Sex: Male

DRUGS (1)
  1. ERLEADA [Suspect]
     Active Substance: APALUTAMIDE
     Indication: PROSTATE CANCER
     Dosage: BY MOUTH DAILY
     Route: 048
     Dates: start: 20181228

REACTIONS (3)
  - Fatigue [Not Recovered/Not Resolved]
  - Urinary tract infection [Unknown]
  - Eye inflammation [Unknown]
